FAERS Safety Report 14363754 (Version 1)
Quarter: 2018Q1

REPORT INFORMATION
  Report Type: Spontaneous
  Country: US (occurrence: US)
  Receive Date: 20180108
  Receipt Date: 20180108
  Transmission Date: 20180509
  Serious: Yes (Hospitalization)
  Sender: FDA-Public Use
  Company Number: US-BIOGEN-2018BI00505996

PATIENT
  Age: 41 Year
  Sex: Female

DRUGS (1)
  1. TYSABRI [Suspect]
     Active Substance: NATALIZUMAB
     Indication: MULTIPLE SCLEROSIS
     Route: 065
     Dates: start: 201706

REACTIONS (8)
  - Vision blurred [Unknown]
  - Dizziness [Unknown]
  - Fatigue [Unknown]
  - Muscle spasms [Unknown]
  - Gait disturbance [Unknown]
  - Depression [Unknown]
  - Pain in extremity [Unknown]
  - Mobility decreased [Unknown]

NARRATIVE: CASE EVENT DATE: 201707
